FAERS Safety Report 4545791-4 (Version None)
Quarter: 2005Q1

REPORT INFORMATION
  Report Type: 
  Country: None (occurrence: None)
  Receive Date: 20050103
  Receipt Date: 20041214
  Transmission Date: 20050727
  Serious: Yes (Hospitalization)
  Sender: FDA-Public Use
  Company Number: USA041286078

PATIENT
  Age: 80 Year
  Sex: Female
  Weight: 69 kg

DRUGS (10)
  1. FORTEO [Suspect]
     Indication: OSTEOPOROSIS
     Dosage: 20 UG/1 DAY
     Dates: start: 20040301, end: 20041201
  2. AVANDIA [Concomitant]
  3. NEURONTIN (GABAPENTIN PFIZER) [Concomitant]
  4. AMARYL [Concomitant]
  5. ULTRAM [Concomitant]
  6. PROTONIX [Concomitant]
  7. ZOCOR (SIMVASTATIN RATIOPHARM) [Concomitant]
  8. LASIX [Concomitant]
  9. TOPROL-XL [Concomitant]
  10. IMDUR [Concomitant]

REACTIONS (2)
  - CARDIAC DISORDER [None]
  - PHARMACEUTICAL PRODUCT COMPLAINT [None]
